FAERS Safety Report 21186802 (Version 1)
Quarter: 2022Q3

REPORT INFORMATION
  Report Type: Report from Study
  Country: US (occurrence: US)
  Receive Date: 20220808
  Receipt Date: 20220808
  Transmission Date: 20221027
  Serious: Yes (Hospitalization)
  Sender: FDA-Public Use
  Company Number: US-AMRYT PHARMACEUTICALS DAC-AEGR005964

PATIENT
  Age: 55 Year
  Sex: Female
  Weight: 45.351 kg

DRUGS (50)
  1. METRELEPTIN [Suspect]
     Active Substance: METRELEPTIN
     Indication: Lipodystrophy acquired
     Dosage: 2.5 MILLIGRAM, QD
     Route: 058
     Dates: start: 20210917, end: 20210919
  2. METRELEPTIN [Suspect]
     Active Substance: METRELEPTIN
     Indication: Acquired generalised lipodystrophy
  3. INSULIN GLARGINE [Concomitant]
     Active Substance: INSULIN GLARGINE
     Indication: Diabetes mellitus
     Dosage: 20 INTERNATIONAL UNIT, QD PM
     Route: 058
     Dates: start: 20210317, end: 20211117
  4. INSULIN GLARGINE [Concomitant]
     Active Substance: INSULIN GLARGINE
     Dosage: 24 INTERNATIONAL UNIT, QD PM
     Dates: start: 20211118
  5. INSULIN GLARGINE [Concomitant]
     Active Substance: INSULIN GLARGINE
     Dosage: 20 INTERNATIONAL UNIT, TID W/MEALS
     Dates: start: 20210317
  6. INSULIN ASPART [Concomitant]
     Active Substance: INSULIN ASPART
     Indication: Diabetes mellitus
     Dosage: 5 INTERNATIONAL UNIT, TID W/ MEALS, 150-200:2 UNITS; 201-250: 4 UNITS; 251-300: 6 UNITS; 301-350: 8
     Route: 058
     Dates: start: 20210323, end: 20220315
  7. INSULIN ASPART [Concomitant]
     Active Substance: INSULIN ASPART
     Dosage: 6 INTERNATIONAL UNIT, TID
     Route: 058
     Dates: start: 20220316
  8. INSULIN ASPART [Concomitant]
     Active Substance: INSULIN ASPART
     Dosage: 20 INTERNATIONAL UNIT, QD PM
     Route: 058
     Dates: start: 20210317
  9. AMITRIPTYLINE [Concomitant]
     Active Substance: AMITRIPTYLINE
     Indication: Depression
     Dosage: 50 MILLIGRAM, QD PM
     Route: 048
     Dates: start: 2018
  10. CITALOPRAM [Concomitant]
     Active Substance: CITALOPRAM HYDROBROMIDE
     Indication: Depression
     Dosage: 25 MILLIGRAM, QD
     Route: 048
     Dates: start: 2018
  11. CITALOPRAM [Concomitant]
     Active Substance: CITALOPRAM HYDROBROMIDE
     Dosage: 30 MILLIGRAM, QD
     Route: 048
     Dates: start: 20211220, end: 20211220
  12. VITAMIN B12 [Concomitant]
     Active Substance: CYANOCOBALAMIN
     Indication: Anaemia vitamin B12 deficiency
     Dosage: 1 GRAM MONTHLY
     Route: 030
     Dates: start: 2018
  13. LEVOTHYROXINE [Concomitant]
     Active Substance: LEVOTHYROXINE
     Indication: Hypothyroidism
     Dosage: 250 UG, QD
     Route: 048
     Dates: start: 2010, end: 20220406
  14. LEVOTHYROXINE [Concomitant]
     Active Substance: LEVOTHYROXINE
     Dosage: 200 UG, QD
     Route: 048
     Dates: start: 20220407
  15. ONDANSETRON [Concomitant]
     Active Substance: ONDANSETRON
     Indication: Prophylaxis of nausea and vomiting
     Dosage: 4 MILLIGRAM, PRN
     Route: 048
     Dates: start: 2018
  16. ONDANSETRON [Concomitant]
     Active Substance: ONDANSETRON
     Indication: Vomiting
     Dosage: 4 MILLIGRAM, PRN, Q6HRS
     Dates: start: 20211214, end: 20211224
  17. VITAMINS [Concomitant]
     Active Substance: VITAMINS
     Indication: Supplementation therapy
     Dosage: 2 TABLET, QD PM
     Route: 048
     Dates: start: 2010
  18. MELATONIN [Concomitant]
     Active Substance: MELATONIN
     Indication: Insomnia
     Dosage: 10 MILLIGRAM, QD PM
     Route: 048
     Dates: start: 201002
  19. HYDROXYZINE HYDROCHLORIDE [Concomitant]
     Active Substance: HYDROXYZINE HYDROCHLORIDE
     Indication: Anxiety
     Dosage: 25 MILLIGRAM 8-12 HRS PRN
     Route: 048
     Dates: start: 2018
  20. AMLODIPINE [Concomitant]
     Active Substance: AMLODIPINE BESYLATE
     Indication: Hypertension
     Dosage: 5 MILLIGRAM, QD
     Route: 048
     Dates: start: 20210320
  21. GABAPENTIN [Concomitant]
     Active Substance: GABAPENTIN
     Indication: Neuropathy peripheral
     Dosage: 300 MILLIGRAM, TID
     Route: 048
     Dates: start: 20210323, end: 20211223
  22. GABAPENTIN [Concomitant]
     Active Substance: GABAPENTIN
     Dosage: 300 MILLIGRAM, TID
     Route: 048
     Dates: start: 20210323
  23. GABAPENTIN [Concomitant]
     Active Substance: GABAPENTIN
     Dosage: 100 MILLIGRAM, QD
     Route: 048
     Dates: start: 20211224, end: 20220120
  24. GABAPENTIN [Concomitant]
     Active Substance: GABAPENTIN
     Dosage: 300 MILLIGRAM, QD
     Route: 048
     Dates: start: 20220121, end: 20220123
  25. GABAPENTIN [Concomitant]
     Active Substance: GABAPENTIN
     Dosage: 100 MILLIGRAM, BID
     Route: 048
     Dates: start: 20220124
  26. GABAPENTIN [Concomitant]
     Active Substance: GABAPENTIN
     Dosage: 300 MILLIGRAM, QD PM
     Route: 048
     Dates: start: 20220124
  27. LISINOPRIL [Concomitant]
     Active Substance: LISINOPRIL
     Indication: Hypertension
     Dosage: 10 MILLIGRAM, QD
     Route: 048
     Dates: start: 20210406, end: 20211213
  28. LISINOPRIL [Concomitant]
     Active Substance: LISINOPRIL
     Dosage: 10 MILLIGRAM, QD
     Route: 048
     Dates: start: 20210407
  29. LISINOPRIL [Concomitant]
     Active Substance: LISINOPRIL
     Dosage: 5 MILLIGRAM, QD
     Route: 048
     Dates: start: 20220124
  30. POTASSIUM [Concomitant]
     Active Substance: POTASSIUM
     Indication: Hypokalaemia
     Dosage: 60 MEQ
     Route: 048
     Dates: start: 20210416, end: 20211213
  31. POTASSIUM [Concomitant]
     Active Substance: POTASSIUM
     Dosage: 60 MEQ
     Dates: start: 20210416
  32. POTASSIUM [Concomitant]
     Active Substance: POTASSIUM
     Dosage: 60 MEQ, QD
     Route: 048
     Dates: start: 20220120, end: 20220123
  33. POTASSIUM [Concomitant]
     Active Substance: POTASSIUM
     Dosage: 20 MEQ, TID
     Route: 048
     Dates: start: 20220207
  34. TRAMADOL [Concomitant]
     Active Substance: TRAMADOL
     Indication: Gout
     Dosage: 100 MILLIGRAM, BID
     Route: 048
     Dates: start: 20210520
  35. TRAMADOL [Concomitant]
     Active Substance: TRAMADOL
     Indication: Pain
  36. ALLOPURINOL [Concomitant]
     Active Substance: ALLOPURINOL
     Indication: Gout
     Dosage: 450 MILLIGRAM, QD
     Dates: start: 20210511, end: 20211223
  37. ALLOPURINOL [Concomitant]
     Active Substance: ALLOPURINOL
     Dosage: 450 MILLIGRAM, QD
     Route: 048
     Dates: start: 20210511
  38. ALLOPURINOL [Concomitant]
     Active Substance: ALLOPURINOL
     Dosage: 100 MILLIGRAM, QD
     Route: 048
     Dates: start: 20211224, end: 20220516
  39. ALLOPURINOL [Concomitant]
     Active Substance: ALLOPURINOL
     Dosage: 200 MILLIGRAM, QD
     Dates: start: 20220517
  40. MAGNESIUM [Concomitant]
     Active Substance: MAGNESIUM
     Indication: Magnesium deficiency
     Dosage: 500 MILLIGRAM, TID
     Route: 048
     Dates: start: 20210629
  41. MAGNESIUM [Concomitant]
     Active Substance: MAGNESIUM
     Dosage: 500 MILLIGRAM, QID
     Route: 048
     Dates: start: 20210629
  42. CALCIUM ACETATE [Concomitant]
     Active Substance: CALCIUM ACETATE
     Indication: Hypophosphataemia
     Dosage: 667 MILLIGRAM, TID
     Route: 048
     Dates: start: 20210923
  43. OXYBUTYNIN [Concomitant]
     Active Substance: OXYBUTYNIN
     Indication: Bladder spasm
     Dosage: 10 MILLIGRAM, QD
     Route: 048
     Dates: start: 20211230
  44. OXYBUTYNIN [Concomitant]
     Active Substance: OXYBUTYNIN
     Dosage: 5 MILLIGRAM, SINGLE
     Route: 048
     Dates: start: 20211219, end: 20211219
  45. COLCHICINE [Concomitant]
     Active Substance: COLCHICINE
     Indication: Gout
     Dosage: 0.6 MILLIGRAM, QD
     Route: 048
     Dates: start: 2017
  46. BACLOFEN [Concomitant]
     Active Substance: BACLOFEN
     Indication: Muscle spasms
     Dosage: 5 MILLIGRAM, TID
     Route: 048
     Dates: start: 20201007
  47. FAMOTIDINE [Concomitant]
     Active Substance: FAMOTIDINE
     Indication: Gastrooesophageal reflux disease
     Dosage: 20 MILLIGRAM, QD
     Route: 048
     Dates: start: 20210320, end: 20211223
  48. FAMOTIDINE [Concomitant]
     Active Substance: FAMOTIDINE
     Dosage: 20 MILLIGRAM, QD
     Route: 048
     Dates: start: 20210320
  49. FAMOTIDINE [Concomitant]
     Active Substance: FAMOTIDINE
     Dosage: 10 MILLIGRAM, QD
     Route: 048
     Dates: start: 20211224, end: 20220228
  50. FAMOTIDINE [Concomitant]
     Active Substance: FAMOTIDINE
     Dosage: 20 MILLIGRAM, Q 24HOURS
     Route: 042
     Dates: start: 20211214, end: 20211215

REACTIONS (1)
  - COVID-19 [Recovered/Resolved with Sequelae]

NARRATIVE: CASE EVENT DATE: 20220701
